FAERS Safety Report 5503558-4 (Version None)
Quarter: 2007Q4

REPORT INFORMATION
  Report Type: 
  Country: None (occurrence: None)
  Receive Date: 20071029
  Receipt Date: 20071011
  Transmission Date: 20080405
  Serious: Yes (Other)
  Sender: FDA-Public Use
  Company Number: 8027498

PATIENT
  Age: 11 Year
  Sex: Male
  Weight: 44 kg

DRUGS (1)
  1. XYZAL [Suspect]
     Dosage: 2.5 MG /D PO
     Route: 048
     Dates: start: 20070914, end: 20070915

REACTIONS (5)
  - AGGRESSION [None]
  - ASTHENIA [None]
  - HEADACHE [None]
  - IRRITABILITY [None]
  - SOMNOLENCE [None]
